FAERS Safety Report 12832815 (Version 1)
Quarter: 2016Q4

REPORT INFORMATION
  Report Type: Report from Study
  Country: FR (occurrence: FR)
  Receive Date: 20161010
  Receipt Date: 20161010
  Transmission Date: 20170207
  Serious: Yes (Hospitalization, Other)
  Sender: FDA-Public Use
  Company Number: FR-BRISTOL-MYERS SQUIBB COMPANY-BMS-2015-021412

PATIENT
  Age: 40 Year
  Sex: Female

DRUGS (2)
  1. DACLATASVIR DIHYDROCHLORIDE [Suspect]
     Active Substance: DACLATASVIR DIHYDROCHLORIDE
     Indication: HEPATITIS C
     Dosage: 60 MG, QD
     Route: 048
     Dates: start: 20140521
  2. SOVALDI [Concomitant]
     Active Substance: SOFOSBUVIR
     Indication: HEPATITIS C
     Dosage: 400 MG, QD
     Route: 048
     Dates: start: 20140521

REACTIONS (10)
  - Nephrotic syndrome [Recovering/Resolving]
  - Renal failure [Recovering/Resolving]
  - Helicobacter infection [Unknown]
  - Vaginal discharge [Unknown]
  - Abdominal pain [Unknown]
  - Chromaturia [Unknown]
  - Retinopathy hypertensive [Unknown]
  - Diabetic retinopathy [Unknown]
  - Gastrointestinal angiodysplasia [Unknown]
  - Anaemia [Recovered/Resolved]

NARRATIVE: CASE EVENT DATE: 20140610
